FAERS Safety Report 7435441-1 (Version None)
Quarter: 2011Q2

REPORT INFORMATION
  Report Type: 
  Country: None (occurrence: None)
  Receive Date: 20110425
  Receipt Date: 20110419
  Transmission Date: 20111010
  Serious: Yes (Hospitalization)
  Sender: FDA-Public Use
  Company Number: US-MERCK-1104USA00971

PATIENT
  Age: 62 Year
  Sex: Male

DRUGS (7)
  1. COZAAR [Suspect]
     Route: 065
     Dates: end: 20080101
  2. TOPROL-XL [Concomitant]
     Route: 065
  3. COZAAR [Suspect]
     Indication: BLOOD PRESSURE
     Route: 048
     Dates: start: 20100601, end: 20100601
  4. COZAAR [Suspect]
     Route: 048
     Dates: start: 20100101
  5. ALLOPURINOL [Concomitant]
     Route: 065
  6. LOSARTAN POTASSIUM [Suspect]
     Route: 048
     Dates: start: 20080401, end: 20080101
  7. HYZAAR [Suspect]
     Route: 048
     Dates: start: 20080401, end: 20100801

REACTIONS (2)
  - BLOOD PRESSURE INCREASED [None]
  - ABDOMINAL DISCOMFORT [None]
